APPROVED DRUG PRODUCT: ZEBETA
Active Ingredient: BISOPROLOL FUMARATE
Strength: 5MG **Federal Register determination that product was not discontinued or withdrawn for safety or effectiveness reasons**
Dosage Form/Route: TABLET;ORAL
Application: N019982 | Product #002
Applicant: TEVA BRANDED PHARMACEUTICAL PRODUCTS R AND D LLC
Approved: Jul 31, 1992 | RLD: Yes | RS: No | Type: DISCN